FAERS Safety Report 10483751 (Version 1)
Quarter: 2014Q3

REPORT INFORMATION
  Report Type: Spontaneous
  Country: US (occurrence: None)
  Receive Date: 20140929
  Receipt Date: 20140929
  Transmission Date: 20150326
  Serious: Yes (Other)
  Sender: FDA-Public Use
  Company Number: None

PATIENT
  Age: 9 Year
  Sex: Male
  Weight: 32.66 kg

DRUGS (1)
  1. ASMANEX [Suspect]
     Active Substance: MOMETASONE FUROATE
     Indication: ASTHMA
     Route: 055
     Dates: start: 20140809, end: 20140906

REACTIONS (3)
  - Substance-induced psychotic disorder [None]
  - Paranoia [None]
  - Feeling abnormal [None]

NARRATIVE: CASE EVENT DATE: 20140820
